FAERS Safety Report 9772564 (Version 1)
Quarter: 2013Q4

REPORT INFORMATION
  Report Type: Spontaneous
  Country: ES (occurrence: ES)
  Receive Date: 20131219
  Receipt Date: 20131219
  Transmission Date: 20140711
  Serious: Yes (Other)
  Sender: FDA-Public Use
  Company Number: ES-TEVA-451553ISR

PATIENT
  Age: 64 Year
  Sex: Female

DRUGS (1)
  1. F?LIBIEN [Suspect]
     Indication: PAIN
     Dosage: 840 MICROGRAM DAILY;
     Route: 062
     Dates: start: 20130422, end: 20130601

REACTIONS (6)
  - Insomnia [Recovered/Resolved]
  - Nausea [Recovered/Resolved]
  - Decreased appetite [Recovered/Resolved]
  - Restless legs syndrome [Recovered/Resolved]
  - Myalgia [Recovered/Resolved]
  - Cold sweat [Recovered/Resolved]
